FAERS Safety Report 5493384-7 (Version None)
Quarter: 2007Q4

REPORT INFORMATION
  Report Type: 
  Country: None (occurrence: None)
  Receive Date: 20071023
  Receipt Date: 20071012
  Transmission Date: 20080405
  Serious: Yes (Hospitalization)
  Sender: FDA-Public Use
  Company Number: GB-ROCHE-522390

PATIENT
  Age: 50 Year
  Sex: Female
  Weight: 71 kg

DRUGS (3)
  1. CAPECITABINE [Suspect]
     Indication: OESOPHAGEAL ADENOCARCINOMA
     Route: 065
     Dates: start: 20070912, end: 20070924
  2. EPIRUBICIN [Suspect]
     Indication: OESOPHAGEAL ADENOCARCINOMA
     Route: 065
     Dates: start: 20070912
  3. CISPLATIN [Suspect]
     Indication: OESOPHAGEAL ADENOCARCINOMA
     Route: 065
     Dates: start: 20070912

REACTIONS (1)
  - CHOLECYSTITIS [None]
